FAERS Safety Report 9193153 (Version 1)
Quarter: 2013Q1

REPORT INFORMATION
  Report Type: Spontaneous
  Country: US (occurrence: US)
  Receive Date: 20130327
  Receipt Date: 20130327
  Transmission Date: 20140127
  Serious: Yes (Other)
  Sender: FDA-Public Use
  Company Number: US-PFIZER INC-2013097847

PATIENT
  Sex: 0

DRUGS (1)
  1. EFFEXOR XR [Suspect]
     Dosage: UNK

REACTIONS (6)
  - Withdrawal syndrome [Unknown]
  - Suicidal ideation [Unknown]
  - Dizziness [Unknown]
  - Impaired driving ability [Unknown]
  - Nausea [Unknown]
  - Eating disorder [Unknown]
